FAERS Safety Report 6962638-7 (Version None)
Quarter: 2010Q3

REPORT INFORMATION
  Report Type: 
  Country: None (occurrence: None)
  Receive Date: 20100902
  Receipt Date: 20100824
  Transmission Date: 20110219
  Serious: Yes (Other)
  Sender: FDA-Public Use
  Company Number: US-PFIZER INC-2007068621

PATIENT
  Sex: Female
  Weight: 60.909 kg

DRUGS (9)
  1. CHANTIX [Suspect]
     Indication: SMOKING CESSATION THERAPY
     Dosage: 0.5 MG, 1X/DAY
     Dates: start: 20070101
  2. CHANTIX [Suspect]
     Dosage: 1 MG, 1X/DAY
     Dates: start: 20070715
  3. PERCOCET [Concomitant]
     Dosage: UNK, AS NEEDED
  4. SYNTHROID [Concomitant]
     Indication: THYROID DISORDER
     Dosage: UNK
  5. PROTONIX [Concomitant]
     Dosage: 40 MG, UNK
  6. DIAZEPAM [Concomitant]
     Dosage: 5 MG, UNK
  7. NYSTATIN [Concomitant]
     Dosage: UNK, 4 TIMES DAILY
  8. ISOSORBIDE MONONITRATE [Concomitant]
     Dosage: 30 MG, 1X/DAY
  9. DILAUDID [Concomitant]
     Dosage: 5 MG, AS NEEDED

REACTIONS (7)
  - DRUG INEFFECTIVE [None]
  - EMOTIONAL DISORDER [None]
  - KNEE ARTHROPLASTY [None]
  - LYME DISEASE [None]
  - MEMORY IMPAIRMENT [None]
  - POSTOPERATIVE WOUND COMPLICATION [None]
  - SURGERY [None]
